FAERS Safety Report 7748365-7 (Version None)
Quarter: 2011Q3

REPORT INFORMATION
  Report Type: 
  Country: None (occurrence: None)
  Receive Date: 20110913
  Receipt Date: 20110909
  Transmission Date: 20111222
  Serious: Yes (Death, Other)
  Sender: FDA-Public Use
  Company Number: PHEH2008US06422

PATIENT
  Sex: Female

DRUGS (8)
  1. PROTONIX [Concomitant]
  2. FOSAMAX [Concomitant]
  3. TORADOL [Concomitant]
     Route: 030
  4. HUMALOG [Concomitant]
     Dosage: 60 U, BID
  5. AREDIA [Suspect]
     Indication: NEOPLASM MALIGNANT
     Dosage: UNK UKN, QMO
  6. HYDROCODONE [Concomitant]
  7. ZOMETA [Suspect]
     Indication: OSTEOPOROSIS
     Dosage: UNK UKN, QMO
  8. DEXAMETHASONE [Concomitant]
     Dosage: 2 MG, BID

REACTIONS (42)
  - ORAL DISCHARGE [None]
  - TOOTH LOSS [None]
  - LOOSE TOOTH [None]
  - OEDEMA PERIPHERAL [None]
  - DEPRESSION [None]
  - MYALGIA [None]
  - BREATH ODOUR [None]
  - HYPOAESTHESIA [None]
  - METASTASES TO CENTRAL NERVOUS SYSTEM [None]
  - METASTASES TO LYMPH NODES [None]
  - HAEMORRHAGIC DIATHESIS [None]
  - MENTAL STATUS CHANGES [None]
  - VISION BLURRED [None]
  - ORAL PAIN [None]
  - FACIAL PAIN [None]
  - EXPOSED BONE IN JAW [None]
  - POLYURIA [None]
  - IRRITABILITY [None]
  - VERTIGO [None]
  - FUNGAL INFECTION [None]
  - PARAESTHESIA [None]
  - PULMONARY EMBOLISM [None]
  - HEADACHE [None]
  - DIZZINESS [None]
  - CONSTIPATION [None]
  - OSTEONECROSIS OF JAW [None]
  - SWELLING [None]
  - INJURY [None]
  - DYSLIPIDAEMIA [None]
  - PAIN IN EXTREMITY [None]
  - HYPERTENSION [None]
  - CONVULSION [None]
  - NAUSEA [None]
  - GENERAL PHYSICAL HEALTH DETERIORATION [None]
  - METASTASES TO BONE [None]
  - VOMITING [None]
  - ANXIETY [None]
  - NEOPLASM PROGRESSION [None]
  - BACK PAIN [None]
  - DEEP VEIN THROMBOSIS [None]
  - DYSPNOEA [None]
  - VAGINAL DISCHARGE [None]
